FAERS Safety Report 10392044 (Version 3)
Quarter: 2014Q3

REPORT INFORMATION
  Report Type: Spontaneous
  Country: US (occurrence: US)
  Receive Date: 20140819
  Receipt Date: 20140829
  Transmission Date: 20150326
  Serious: Yes (Death, Hospitalization)
  Sender: FDA-Public Use
  Company Number: US-UNITED THERAPEUTICS-UNT-2014-005051

PATIENT
  Age: 64 Year
  Sex: Male
  Weight: 63.5 kg

DRUGS (4)
  1. WARFARIN [Concomitant]
     Active Substance: WARFARIN
     Indication: PRODUCT USED FOR UNKNOWN INDICATION
  2. ADCIRCA [Concomitant]
     Active Substance: TADALAFIL
     Indication: PRODUCT USED FOR UNKNOWN INDICATION
  3. REMODULIN [Suspect]
     Active Substance: TREPROSTINIL
     Indication: COR PULMONALE CHRONIC
     Dosage: 0.039 ?G/KG, CONTINUING
     Route: 041
     Dates: start: 20131219
  4. REMODULIN [Suspect]
     Active Substance: TREPROSTINIL
     Dosage: 0.039 ?G/KG, CONTINUING
     Route: 041
     Dates: start: 20131222, end: 20140810

REACTIONS (9)
  - Pyrexia [Fatal]
  - Thrombocytopenia [Unknown]
  - Vomiting [Unknown]
  - Scleroderma [Unknown]
  - Peritonitis [Unknown]
  - Platelet count decreased [Fatal]
  - Diarrhoea [Unknown]
  - Sepsis [Unknown]
  - Renal failure acute [Unknown]

NARRATIVE: CASE EVENT DATE: 20140725
